FAERS Safety Report 20296226 (Version 2)
Quarter: 2022Q1

REPORT INFORMATION
  Report Type: Other
  Country: US (occurrence: US)
  Receive Date: 20220105
  Receipt Date: 20220216
  Transmission Date: 20220424
  Serious: No
  Sender: FDA-Public Use
  Company Number: US-NEUROCRINE BIOSCIENCES INC.-2021NBI07601

PATIENT

DRUGS (5)
  1. INGREZZA [Suspect]
     Active Substance: VALBENAZINE
     Indication: Tardive dyskinesia
     Dosage: 80 MILLIGRAM
     Route: 048
     Dates: start: 20211208
  2. INGREZZA [Suspect]
     Active Substance: VALBENAZINE
     Dosage: 60 MILLIGRAM
     Route: 048
     Dates: start: 20210803
  3. EFFEXOR XR [Concomitant]
     Active Substance: VENLAFAXINE HYDROCHLORIDE
     Indication: Major depression
     Dosage: 225 MILLIGRAM
  4. EFFEXOR XR [Concomitant]
     Active Substance: VENLAFAXINE HYDROCHLORIDE
     Indication: Post-traumatic stress disorder
  5. KLONOPIN [Concomitant]
     Active Substance: CLONAZEPAM
     Dosage: 0.5 MILLIGRAM

REACTIONS (1)
  - Therapeutic product effect incomplete [Unknown]
